FAERS Safety Report 9495389 (Version 3)
Quarter: 2013Q4

REPORT INFORMATION
  Report Type: Spontaneous
  Country: DK (occurrence: DK)
  Receive Date: 20130903
  Receipt Date: 20131216
  Transmission Date: 20140711
  Serious: Yes (Disabling, Other)
  Sender: FDA-Public Use
  Company Number: DK-TEVA-428469ISR

PATIENT
  Age: 67 Year
  Sex: Female

DRUGS (13)
  1. METHOTREXAT [Suspect]
     Indication: RHEUMATOID ARTHRITIS
     Dates: start: 20090525
  2. METHOTREXAT [Suspect]
  3. METHOTREXAT [Suspect]
     Dates: start: 20090916, end: 20100318
  4. METHOTREXAT [Suspect]
     Dosage: 15 MG, QW
  5. METHOTREXAT [Suspect]
     Dates: start: 20090708
  6. METHOTREXAT [Suspect]
     Dosage: 10 MG, QW, DOSE BE REDUCED TO 10 MG PER WEEK
     Dates: start: 2012, end: 20120717
  7. EBETREX [Suspect]
     Indication: RHEUMATOID ARTHRITIS
     Dates: start: 20100318
  8. METEX [Suspect]
     Indication: RHEUMATOID ARTHRITIS
     Dates: start: 2012, end: 201204
  9. METEX [Suspect]
     Dates: start: 201205, end: 20120717
  10. HUMIRA [Concomitant]
     Indication: RHEUMATOID ARTHRITIS
     Dosage: 40 MG, BIW
     Dates: start: 20100901, end: 20120106
  11. ENBREL [Concomitant]
     Indication: RHEUMATOID ARTHRITIS
     Dates: start: 201202, end: 201204
  12. ENBREL [Concomitant]
     Dates: start: 201205, end: 20120703
  13. ORENCIA [Concomitant]
     Indication: RHEUMATOID ARTHRITIS
     Dates: start: 20120703

REACTIONS (15)
  - Lung disorder [Unknown]
  - Pneumonitis [Unknown]
  - Pneumonia [Unknown]
  - Pneumonia [Unknown]
  - Pulmonary function test decreased [Not Recovered/Not Resolved]
  - Lung infiltration [Recovering/Resolving]
  - Lung infection [Unknown]
  - Cough [Recovered/Resolved]
  - Dyspnoea [Not Recovered/Not Resolved]
  - Insomnia [Recovered/Resolved]
  - Alopecia [Unknown]
  - Muscle spasms [Unknown]
  - Saliva altered [Recovered/Resolved]
  - Malaise [Unknown]
  - Arthralgia [Unknown]
